FAERS Safety Report 6761211-3 (Version None)
Quarter: 2010Q2

REPORT INFORMATION
  Report Type: 
  Country: None (occurrence: None)
  Receive Date: 20100608
  Receipt Date: 20100527
  Transmission Date: 20101027
  Serious: Yes (Other)
  Sender: FDA-Public Use
  Company Number: BR-ROCHE-706227

PATIENT
  Sex: Female

DRUGS (7)
  1. FUZEON [Suspect]
     Dosage: DOSE REPORTED AS 90 MG/ML
     Route: 065
     Dates: start: 20091201
  2. NORVIR [Concomitant]
     Route: 048
  3. DARUNAVIR [Concomitant]
     Route: 048
  4. LAMIVUDINE [Concomitant]
     Route: 048
  5. ISENTRESS [Concomitant]
     Route: 048
  6. DICLOFENAC [Concomitant]
     Indication: PAIN
     Route: 048
     Dates: end: 20100301
  7. DICLOFENAC [Concomitant]
     Route: 048
     Dates: start: 20100301

REACTIONS (3)
  - APPLICATION SITE NODULE [None]
  - APPLICATION SITE PAIN [None]
  - WEIGHT INCREASED [None]
